FAERS Safety Report 7564322-8 (Version None)
Quarter: 2011Q2

REPORT INFORMATION
  Report Type: 
  Country: None (occurrence: None)
  Receive Date: 20110622
  Receipt Date: 20110609
  Transmission Date: 20111010
  Serious: Yes (Hospitalization)
  Sender: FDA-Public Use
  Company Number: PHHY2011US51365

PATIENT
  Age: 41 Year
  Sex: Male

DRUGS (3)
  1. PREDNISONE [Concomitant]
     Dosage: 10 MG DAILY
     Route: 048
     Dates: start: 19971121
  2. SANDIMMUNE [Suspect]
     Indication: PROPHYLAXIS AGAINST TRANSPLANT REJECTION
     Dosage: 400 MG, UNK
     Route: 048
     Dates: start: 19971208
  3. MYCOPHENOLATE MEFETIL [Concomitant]
     Indication: PROPHYLAXIS AGAINST TRANSPLANT REJECTION
     Dosage: 1500 MG DAILY
     Route: 048
     Dates: start: 19971208

REACTIONS (1)
  - PERITONITIS [None]
